FAERS Safety Report 16479401 (Version 1)
Quarter: 2019Q2

REPORT INFORMATION
  Report Type: Spontaneous
  Country: US (occurrence: US)
  Receive Date: 20190626
  Receipt Date: 20190626
  Transmission Date: 20190711
  Serious: No
  Sender: FDA-Public Use
  Company Number: US-HIKMA PHARMACEUTICALS USA INC.-US-H14001-19-00662

PATIENT
  Age: 50 Year
  Sex: Female

DRUGS (2)
  1. ZALEPLON. [Suspect]
     Active Substance: ZALEPLON
     Route: 048
     Dates: start: 20190128
  2. ZALEPLON. [Suspect]
     Active Substance: ZALEPLON
     Indication: INSOMNIA
     Route: 048
     Dates: start: 20190127

REACTIONS (2)
  - Initial insomnia [Unknown]
  - Fatigue [Not Recovered/Not Resolved]

NARRATIVE: CASE EVENT DATE: 20190127
